FAERS Safety Report 4744617-3 (Version None)
Quarter: 2005Q3

REPORT INFORMATION
  Report Type: 
  Country: None (occurrence: None)
  Receive Date: 20050809
  Receipt Date: 20050217
  Transmission Date: 20060218
  Serious: Yes (Life-Threatening)
  Sender: FDA-Public Use
  Company Number: 05R-163-0291535-00

PATIENT

DRUGS (1)
  1. SURVANTA [Suspect]
     Dosage: ENDOTRACHEAL
     Route: 007

REACTIONS (2)
  - ENDOTRACHEAL INTUBATION COMPLICATION [None]
  - RESUSCITATION [None]
